FAERS Safety Report 5947609-1 (Version None)
Quarter: 2008Q4

REPORT INFORMATION
  Report Type: 
  Country: None (occurrence: None)
  Receive Date: 20081107
  Receipt Date: 20080918
  Transmission Date: 20090506
  Serious: Yes (Hospitalization)
  Sender: FDA-Public Use
  Company Number: KV200800184

PATIENT
  Sex: Female

DRUGS (1)
  1. MORPHINE SULFATE [Suspect]
     Indication: PAIN
     Dates: start: 20070810, end: 20070815

REACTIONS (3)
  - DISORIENTATION [None]
  - FALL [None]
  - HIP ARTHROPLASTY [None]
